FAERS Safety Report 11723464 (Version 1)
Quarter: 2015Q4

REPORT INFORMATION
  Report Type: Spontaneous
  Country: US (occurrence: US)
  Receive Date: 20151111
  Receipt Date: 20151111
  Transmission Date: 20160304
  Serious: No
  Sender: FDA-Public Use
  Company Number: US-ACTELION PHARMACEUTICALS US, INC.-A-US2015-126813

PATIENT
  Age: 71 Year
  Sex: Male

DRUGS (8)
  1. ZAVESCA [Suspect]
     Active Substance: MIGLUSTAT
     Indication: LIPID METABOLISM DISORDER
     Dosage: 100 MG, TID
     Route: 048
     Dates: start: 20151030
  2. ROBINUL [Concomitant]
     Active Substance: GLYCOPYRROLATE
     Dosage: 1 MG, UNK
     Dates: start: 20151029
  3. KEPPRA [Concomitant]
     Active Substance: LEVETIRACETAM
     Dosage: 100 MG/ML
     Dates: start: 20151029
  4. ZONISAMIDE. [Concomitant]
     Active Substance: ZONISAMIDE
     Dosage: 100 MG, UNK
     Dates: start: 20151029
  5. HYDROCHLOROTHIAZIDE. [Concomitant]
     Active Substance: HYDROCHLOROTHIAZIDE
     Dosage: 50 MG, UNK
     Dates: start: 20151029
  6. VALPROIC ACID. [Concomitant]
     Active Substance: VALPROIC ACID
     Dosage: 250 MG/5 ML
     Dates: start: 20151030
  7. LORATADINE. [Concomitant]
     Active Substance: LORATADINE
     Dosage: 10 MG, UNK
     Dates: start: 20151029
  8. MIRALAX [Concomitant]
     Active Substance: POLYETHYLENE GLYCOL 3350
     Dosage: 17 G/ DOSE POWDER
     Dates: start: 20151029

REACTIONS (2)
  - Productive cough [Unknown]
  - Diarrhoea [Unknown]

NARRATIVE: CASE EVENT DATE: 20151031
